FAERS Safety Report 15677483 (Version 2)
Quarter: 2018Q4

REPORT INFORMATION
  Report Type: Report from Study
  Country: CR (occurrence: CR)
  Receive Date: 20181130
  Receipt Date: 20181207
  Transmission Date: 20190205
  Serious: Yes (Other)
  Sender: FDA-Public Use
  Company Number: PHHY2018CR045578

PATIENT
  Sex: Female
  Weight: 52 kg

DRUGS (1)
  1. TASIGNA [Suspect]
     Active Substance: NILOTINIB
     Indication: CHRONIC MYELOID LEUKAEMIA
     Dosage: 2 DF, BID
     Route: 065

REACTIONS (6)
  - Dupuytren^s contracture [Unknown]
  - Trigger finger [Unknown]
  - Thyroid mass [Unknown]
  - Pain in extremity [Unknown]
  - Thyroid disorder [Unknown]
  - Hypertension [Unknown]
